FAERS Safety Report 5382031-0 (Version None)
Quarter: 2007Q3

REPORT INFORMATION
  Report Type: 
  Country: None (occurrence: None)
  Receive Date: 20070709
  Receipt Date: 20070702
  Transmission Date: 20080115
  Serious: Yes (Hospitalization)
  Sender: FDA-Public Use
  Company Number: US-ASTRAZENECA-2007UW01941

PATIENT
  Sex: Female
  Weight: 84.1 kg

DRUGS (5)
  1. SEROQUEL [Suspect]
     Indication: BIPOLAR DISORDER
     Route: 048
     Dates: start: 20050728, end: 20051201
  2. SEROQUEL [Suspect]
     Route: 048
     Dates: start: 20060326, end: 20060428
  3. GEODON [Concomitant]
     Dates: start: 20060728
  4. HALDOL [Concomitant]
     Dates: start: 20060101, end: 20060101
  5. LITHIUM CARBONATE [Concomitant]
     Dates: start: 19960801

REACTIONS (2)
  - CHOLECYSTECTOMY [None]
  - TYPE 2 DIABETES MELLITUS [None]
